FAERS Safety Report 13584571 (Version 3)
Quarter: 2017Q2

REPORT INFORMATION
  Report Type: Spontaneous
  Country: SI (occurrence: SI)
  Receive Date: 20170526
  Receipt Date: 20170623
  Transmission Date: 20170830
  Serious: Yes (Hospitalization, Other)
  Sender: FDA-Public Use
  Company Number: PHHY2017SI077803

PATIENT
  Sex: Male

DRUGS (2)
  1. ENTRESTO [Suspect]
     Active Substance: SACUBITRIL\VALSARTAN
     Dosage: 200 (97/103) OT, UNK
     Route: 065
     Dates: start: 20170420
  2. ENTRESTO [Suspect]
     Active Substance: SACUBITRIL\VALSARTAN
     Indication: CARDIAC FAILURE
     Dosage: 100 (49/51) OT, UNK
     Route: 065

REACTIONS (5)
  - Pulmonary oedema [Recovered/Resolved]
  - Acute myocardial infarction [Unknown]
  - Hypertensive heart disease [Unknown]
  - Blood pressure abnormal [Unknown]
  - Cardiac failure [Unknown]

NARRATIVE: CASE EVENT DATE: 201705
